FAERS Safety Report 5727169-0 (Version None)
Quarter: 2008Q2

REPORT INFORMATION
  Report Type: 
  Country: None (occurrence: None)
  Receive Date: 20080430
  Receipt Date: 20080421
  Transmission Date: 20081010
  Serious: Yes (Hospitalization)
  Sender: FDA-Public Use
  Company Number: 6042401

PATIENT
  Age: 83 Year
  Sex: Female

DRUGS (9)
  1. BISOPROLOL FUMARATE [Suspect]
     Indication: DRUG USE FOR UNKNOWN INDICATION
     Dosage: 2.5 MG (2.5 MG, 1 IN 1 D), ORAL
     Route: 048
     Dates: start: 20080402, end: 20080402
  2. KARDEGIC (ACETYLSALICYLATE LYSINE) [Concomitant]
  3. LASIX [Concomitant]
  4. PERINDOPRIL ERBUMINE [Concomitant]
  5. LESCOL [Concomitant]
  6. GLUCOVANCE [Concomitant]
  7. HUMALOG MIX 50 (INSULIN LISPRO) [Concomitant]
  8. IMOVANE (ZOPICLONE) [Concomitant]
  9. FOLIC ACID [Concomitant]

REACTIONS (3)
  - ANGIOEDEMA [None]
  - CARDIAC DISORDER [None]
  - TONGUE OEDEMA [None]
